FAERS Safety Report 6447687-X (Version None)
Quarter: 2009Q4

REPORT INFORMATION
  Report Type: 
  Country: None (occurrence: None)
  Receive Date: 20091120
  Receipt Date: 20091112
  Transmission Date: 20100525
  Serious: Yes (Hospitalization)
  Sender: FDA-Public Use
  Company Number: US-BIOGENIDEC-2009BI031559

PATIENT
  Age: 62 Year
  Sex: Female

DRUGS (8)
  1. TYSABRI [Suspect]
     Indication: MULTIPLE SCLEROSIS
     Route: 042
     Dates: start: 20090602
  2. PROVIGIL [Concomitant]
  3. AMBIEN [Concomitant]
  4. BONIVA [Concomitant]
  5. LIDODERM [Concomitant]
  6. PRED FORTE [Concomitant]
  7. SYNTHROID [Concomitant]
  8. ZOLOFT [Concomitant]

REACTIONS (2)
  - FALL [None]
  - HIP FRACTURE [None]
